FAERS Safety Report 9129888 (Version 1)
Quarter: 2013Q1

REPORT INFORMATION
  Report Type: Spontaneous
  Country: US (occurrence: US)
  Receive Date: 20130125
  Receipt Date: 20130125
  Transmission Date: 20140127
  Serious: Yes (Hospitalization)
  Sender: FDA-Public Use
  Company Number: US-AMGEN-USASP2013004507

PATIENT
  Age: 64 Year
  Sex: Female

DRUGS (1)
  1. ENBREL [Suspect]
     Indication: RHEUMATOID ARTHRITIS
     Dosage: 50 MG, QWK
     Dates: start: 201211

REACTIONS (4)
  - Ankle fracture [Recovered/Resolved]
  - Fall [Recovered/Resolved]
  - Pain in extremity [Recovered/Resolved]
  - Local swelling [Recovered/Resolved]
